FAERS Safety Report 8844873 (Version 1)
Quarter: 2012Q4

REPORT INFORMATION
  Report Type: Spontaneous
  Country: US (occurrence: None)
  Receive Date: 20121002
  Receipt Date: 20121002
  Transmission Date: 20130627
  Serious: Yes (Hospitalization)
  Sender: FDA-Public Use
  Company Number: RB-42171-2012

PATIENT
  Age: 70 Year
  Sex: Male

DRUGS (7)
  1. SUBOXONE [Suspect]
     Indication: DRUG DEPENDENCE
     Route: 060
     Dates: start: 201204, end: 201206
  2. SUBOXONE [Suspect]
     Indication: DRUG DEPENDENCE
     Route: 060
     Dates: start: 201206, end: 201206
  3. LASIX [Concomitant]
  4. ANTIHYPERTENSIVES [Concomitant]
  5. SINGULAIR [Concomitant]
  6. RESTORIL [Concomitant]
  7. PREDNISONE [Concomitant]

REACTIONS (5)
  - Dyspnoea [None]
  - Nausea [None]
  - Hyperhidrosis [None]
  - Headache [None]
  - Visual impairment [None]
